FAERS Safety Report 9704951 (Version 2)
Quarter: 2013Q4

REPORT INFORMATION
  Report Type: Spontaneous
  Country: US (occurrence: US)
  Receive Date: 20131122
  Receipt Date: 20131122
  Transmission Date: 20140711
  Serious: Yes (Other)
  Sender: FDA-Public Use
  Company Number: CHPA2013US016488

PATIENT
  Age: 83 Year
  Sex: Male

DRUGS (4)
  1. VOLTAREN GEL [Suspect]
     Indication: ARTHRITIS
     Dosage: UNK, UNK
     Route: 061
  2. VOLTAREN GEL [Suspect]
     Indication: PAIN IN EXTREMITY
  3. VOLTAREN GEL [Suspect]
     Indication: OFF LABEL USE
  4. CETIRIZINE [Concomitant]
     Dosage: UNK, UNK

REACTIONS (6)
  - Scab [Unknown]
  - Rash [Unknown]
  - Impaired healing [Recovered/Resolved]
  - Skin reaction [Recovered/Resolved]
  - Underdose [Unknown]
  - Wrong technique in drug usage process [Unknown]
